FAERS Safety Report 7341879-3 (Version None)
Quarter: 2011Q1

REPORT INFORMATION
  Report Type: 
  Country: None (occurrence: None)
  Receive Date: 20110309
  Receipt Date: 20101210
  Transmission Date: 20110831
  Serious: No
  Sender: FDA-Public Use
  Company Number: US-BAYER-2011-004760

PATIENT
  Sex: Female
  Weight: 47 kg

DRUGS (3)
  1. VITAMIN B-12 [Concomitant]
  2. ANTIHYPERTENSIVES [Concomitant]
  3. ALEVE (CAPLET) [Suspect]
     Indication: BACK PAIN
     Dosage: UNK
     Dates: start: 20101209

REACTIONS (1)
  - BACK PAIN [None]
